FAERS Safety Report 4839460-0 (Version None)
Quarter: 2005Q4

REPORT INFORMATION
  Report Type: 
  Country: None (occurrence: None)
  Receive Date: 20051129
  Receipt Date: 20051117
  Transmission Date: 20060501
  Serious: Yes (Hospitalization)
  Sender: FDA-Public Use
  Company Number: DE-MERCK-0511DEU00125

PATIENT
  Age: 72 Year
  Sex: Female
  Weight: 64 kg

DRUGS (10)
  1. VIOXX [Suspect]
     Indication: OSTEOARTHRITIS
     Route: 048
     Dates: start: 20010330, end: 20010417
  2. VIOXX [Suspect]
     Route: 048
     Dates: start: 20010418, end: 20010827
  3. VIOXX [Suspect]
     Route: 048
     Dates: start: 20010828, end: 20020204
  4. VIOXX [Suspect]
     Route: 048
     Dates: start: 20020205, end: 20020601
  5. VIOXX [Suspect]
     Route: 048
     Dates: start: 20031219, end: 20040101
  6. VIOXX [Suspect]
     Indication: SPINAL OSTEOARTHRITIS
     Route: 048
     Dates: start: 20010330, end: 20010417
  7. VIOXX [Suspect]
     Route: 048
     Dates: start: 20010418, end: 20010827
  8. VIOXX [Suspect]
     Route: 048
     Dates: start: 20010828, end: 20020204
  9. VIOXX [Suspect]
     Route: 048
     Dates: start: 20020205, end: 20020601
  10. VIOXX [Suspect]
     Route: 048
     Dates: start: 20031219, end: 20040101

REACTIONS (11)
  - AORTIC ARTERIOSCLEROSIS [None]
  - CEREBROVASCULAR ACCIDENT [None]
  - CEREBROVASCULAR INSUFFICIENCY [None]
  - FACIAL BONES FRACTURE [None]
  - FALL [None]
  - GASTROENTERITIS [None]
  - GOITRE [None]
  - HEPATOCELLULAR DAMAGE [None]
  - HYPERTHYROIDISM [None]
  - IRON DEFICIENCY [None]
  - LIPID METABOLISM DISORDER [None]
